FAERS Safety Report 6405823-5 (Version None)
Quarter: 2009Q4

REPORT INFORMATION
  Report Type: 
  Country: None (occurrence: None)
  Receive Date: 20091019
  Receipt Date: 20091014
  Transmission Date: 20100525
  Serious: Yes (Congenital Anomaly)
  Sender: FDA-Public Use
  Company Number: GB-MERCK-0909GBR00077B1

PATIENT
  Sex: Male

DRUGS (2)
  1. PRINIVIL [Suspect]
     Indication: CARDIOMYOPATHY
     Route: 064
  2. DIURETIC (UNSPECIFIED) [Concomitant]
     Indication: CARDIOMYOPATHY
     Route: 064

REACTIONS (2)
  - HYPOSPADIAS [None]
  - OLIGOHYDRAMNIOS [None]
